FAERS Safety Report 9079713 (Version 1)
Quarter: 2013Q1

REPORT INFORMATION
  Report Type: Spontaneous
  Country: US (occurrence: US)
  Receive Date: 20130215
  Receipt Date: 20130215
  Transmission Date: 20140127
  Serious: Yes (Hospitalization)
  Sender: FDA-Public Use
  Company Number: US-GLAXOSMITHKLINE-A1010946A

PATIENT
  Sex: Female

DRUGS (2)
  1. ADVAIR [Suspect]
     Indication: DYSPNOEA
     Dosage: 1PUFF TWICE PER DAY
     Route: 055
     Dates: start: 2005, end: 20130108
  2. NO CONCURRENT MEDICATION [Concomitant]

REACTIONS (9)
  - Sinusitis [Recovering/Resolving]
  - Lung infection [Unknown]
  - Pneumonia [Unknown]
  - Emphysema [Unknown]
  - Chronic obstructive pulmonary disease [Unknown]
  - Bronchitis [Unknown]
  - Palpitations [Unknown]
  - Heart rate irregular [Unknown]
  - Anxiety [Unknown]
